FAERS Safety Report 20083577 (Version 2)
Quarter: 2021Q4

REPORT INFORMATION
  Report Type: Report from Study
  Country: US (occurrence: None)
  Receive Date: 20211118
  Receipt Date: 20211221
  Transmission Date: 20220303
  Serious: Yes (Death)
  Sender: FDA-Public Use
  Company Number: 2021A807511

PATIENT
  Sex: Male
  Weight: 59 kg

DRUGS (1)
  1. SYMBICORT [Suspect]
     Active Substance: BUDESONIDE\FORMOTEROL FUMARATE DIHYDRATE
     Indication: Product used for unknown indication
     Dosage: UNKNOWN UNKNOWN
     Route: 055

REACTIONS (3)
  - Chronic obstructive pulmonary disease [Fatal]
  - Lung neoplasm malignant [Fatal]
  - Pneumonia pseudomonal [Fatal]
